FAERS Safety Report 11167928 (Version 2)
Quarter: 2015Q2

REPORT INFORMATION
  Report Type: Spontaneous
  Country: US (occurrence: US)
  Receive Date: 20150605
  Receipt Date: 20150625
  Transmission Date: 20150821
  Serious: Yes (Disabling, Other)
  Sender: FDA-Public Use
  Company Number: US-PERRIGO-15US005468

PATIENT
  Age: 64 Year
  Sex: Female
  Weight: 63.49 kg

DRUGS (10)
  1. PREMARIN [Concomitant]
     Active Substance: ESTROGENS, CONJUGATED
     Indication: HORMONE REPLACEMENT THERAPY
     Dosage: UNK
     Route: 067
     Dates: start: 2011
  2. LANSOPRAZOLE. [Concomitant]
     Active Substance: LANSOPRAZOLE
     Indication: DYSPEPSIA
     Dosage: 30 MG
     Route: 065
  3. VESICARE [Concomitant]
     Active Substance: SOLIFENACIN SUCCINATE
     Indication: BLADDER DISORDER
     Dosage: UNK
     Route: 065
     Dates: start: 2012
  4. PATANOL [Concomitant]
     Active Substance: OLOPATADINE HYDROCHLORIDE
     Indication: EYE ALLERGY
     Dosage: UNK
     Route: 065
  5. TRIAMCINOLONE [Concomitant]
     Active Substance: TRIAMCINOLONE
     Indication: HYPERSENSITIVITY
     Dosage: UNK
     Route: 045
  6. PREVADENT [Concomitant]
     Indication: DENTAL DISORDER PROPHYLAXIS
     Dosage: UNK
     Route: 002
  7. MOMETASONE FUROATE RX  0.1% 5D8 [Suspect]
     Active Substance: MOMETASONE FUROATE
     Indication: DRUG THERAPY
     Dosage: 2-3, GTTS, SINGLE
     Route: 050
     Dates: start: 20140910, end: 20140910
  8. MOMETASONE FUROATE RX  0.1% 5D8 [Suspect]
     Active Substance: MOMETASONE FUROATE
     Dosage: 2-3, GTTS, SINGLE
     Route: 050
     Dates: start: 20140820, end: 20140820
  9. VALSARTAN. [Concomitant]
     Active Substance: VALSARTAN
     Indication: HYPERTENSION
     Dosage: UNK
     Route: 065
  10. AZELASTINE [Concomitant]
     Active Substance: AZELASTINE
     Indication: HYPERSENSITIVITY
     Dosage: UNK
     Route: 045

REACTIONS (4)
  - Tinnitus [Not Recovered/Not Resolved]
  - Application site pain [Recovered/Resolved]
  - Incorrect route of drug administration [Recovered/Resolved]
  - Deafness unilateral [Not Recovered/Not Resolved]

NARRATIVE: CASE EVENT DATE: 201408
